FAERS Safety Report 9863055 (Version 1)
Quarter: 2014Q1

REPORT INFORMATION
  Report Type: Report from Study
  Country: CA (occurrence: CA)
  Receive Date: 20140203
  Receipt Date: 20140203
  Transmission Date: 20141002
  Serious: Yes (Hospitalization)
  Sender: FDA-Public Use
  Company Number: CA-JNJFOC-20140117124

PATIENT
  Age: 37 Year
  Sex: Male
  Weight: 86 kg

DRUGS (50)
  1. REMICADE [Suspect]
     Indication: CROHN^S DISEASE
     Route: 042
     Dates: start: 20121128
  2. LENOLTECH NO 3 [Concomitant]
     Dosage: 1 OR 2 TABLETS EVERY 4-6 HOURS WHEN REQUIRED,
     Route: 065
     Dates: start: 20120829
  3. LENOLTECH NO 3 [Concomitant]
     Dosage: 1 OR 2 TABLETS EVERY 4-6 HOURS WHEN ~QUIRED
     Route: 065
     Dates: start: 20121008
  4. LENOLTECH NO 3 [Concomitant]
     Dosage: 1 OR 2 TABLETS EVERY 4-6 HOURS WHEN ~QUIRED
     Route: 065
     Dates: start: 20121018
  5. LENOLTECH NO 3 [Concomitant]
     Dosage: 1 OR 2 TABLETS EVERY 4-6 HOURS WHEN ~QUIRED
     Route: 065
     Dates: start: 20121121
  6. LENOLTECH WITH CODEINE NO 4 [Concomitant]
     Dosage: 60MG/300MG??TAKE 1 0R2 TABLETS EVERY 4 HOURS WHEN REQUIRED
     Route: 065
     Dates: start: 20120719
  7. APO-LOPERAMIDE [Concomitant]
     Route: 065
     Dates: start: 20121121
  8. APO-LOPERAMIDE [Concomitant]
     Route: 065
     Dates: start: 20121102
  9. APO-LOPERAMIDE [Concomitant]
     Route: 065
     Dates: start: 20121008
  10. LANSOPRAZOLE [Concomitant]
     Route: 065
     Dates: start: 20120110
  11. QUETIAPINE [Concomitant]
     Route: 065
     Dates: start: 20121008
  12. QUETIAPINE [Concomitant]
     Route: 065
     Dates: start: 20120306
  13. QUETIAPINE [Concomitant]
     Route: 065
     Dates: start: 20120720
  14. QUETIAPINE [Concomitant]
     Route: 065
     Dates: start: 20120806
  15. MIRTAZAPINE [Concomitant]
     Route: 065
     Dates: start: 20120720
  16. MIRTAZAPINE [Concomitant]
     Route: 065
     Dates: start: 20121008
  17. MIRTAZAPINE [Concomitant]
     Route: 065
     Dates: start: 20120806
  18. PMS-METOPROLOL-L [Concomitant]
     Route: 065
     Dates: start: 20121008
  19. PMS-METOPROLOL-L [Concomitant]
     Dosage: HALF TAB TWICE DAILY FOR 2 MONTHS
     Route: 065
     Dates: start: 20120730
  20. VITAMIN B1 [Concomitant]
     Dosage: EACH  MORNING
     Route: 065
     Dates: start: 20120719
  21. VITAMIN B1 [Concomitant]
     Dosage: EACH  MORNING
     Route: 065
     Dates: start: 20121008
  22. VITAMIN D [Concomitant]
     Dosage: EACH  MORNING
     Route: 065
     Dates: start: 20121008
  23. VITAMIN D [Concomitant]
     Dosage: EACH  MORNING
     Route: 065
     Dates: start: 20120914
  24. VITAMIN D [Concomitant]
     Dosage: EACH  MORNING
     Route: 065
     Dates: start: 20120720
  25. RATIO-CODEINE [Concomitant]
     Dosage: 1 OR 2 TABLETS 4 TO 6 HOURS WHEN REQUIRED
     Route: 065
     Dates: start: 20121114
  26. MULTIVITAMINS + MINERALS PLUS LUTEIN [Concomitant]
     Route: 065
     Dates: start: 20120720
  27. MULTIVITAMINS + MINERALS PLUS LUTEIN [Concomitant]
     Route: 065
     Dates: start: 20121008
  28. HYDROCORTISONE W/NYSTATIN [Concomitant]
     Route: 065
     Dates: start: 20121018
  29. NOVO-CLINDAMYCIN [Concomitant]
     Dosage: 300 MG
     Route: 065
     Dates: start: 20121018
  30. NOVO ALPRAZOL [Concomitant]
     Route: 065
     Dates: start: 20120806
  31. NOVO ALPRAZOL [Concomitant]
     Route: 065
     Dates: start: 20121008
  32. NOVO ALPRAZOL [Concomitant]
     Route: 065
     Dates: start: 20120306
  33. NOVO ALPRAZOL [Concomitant]
     Route: 065
     Dates: start: 20120720
  34. FLOVENT HFA [Concomitant]
     Dosage: 1 PUFF TWICE DAILY
     Route: 055
     Dates: start: 20120720
  35. FLOVENT HFA [Concomitant]
     Dosage: 1 PUFF
     Route: 055
     Dates: start: 20121008
  36. CYANOCOBALAMIN [Concomitant]
     Route: 065
     Dates: start: 20121008
  37. CIPROFLOXACIN SANDOZ [Concomitant]
     Route: 065
     Dates: start: 20121008
  38. METRONIDAZOLE [Concomitant]
     Route: 065
     Dates: start: 20121008
  39. BUSCOPAN [Concomitant]
     Dosage: 10 MG
     Route: 065
     Dates: start: 20120720
  40. METHOTREXATE SODIUM [Concomitant]
     Route: 065
     Dates: start: 20120618
  41. METHOTREXATE SODIUM [Concomitant]
     Route: 065
     Dates: start: 20120730
  42. PMS-METOPROLOL-L [Concomitant]
     Dosage: HALF TAB TWICE DAILY FOR 2 MONTHS
     Route: 065
     Dates: start: 20120730
  43. APO PREDNISONE [Concomitant]
     Route: 065
     Dates: start: 20120729
  44. APO PREDNISONE [Concomitant]
     Route: 065
     Dates: start: 20120720
  45. BUPROPION [Concomitant]
     Dosage: EACH MORNING
     Route: 065
     Dates: start: 20120306
  46. DICETEL [Concomitant]
     Route: 065
     Dates: start: 20120720
  47. APO-FOLIC [Concomitant]
     Route: 065
     Dates: start: 20120720
  48. APO K [Concomitant]
     Dosage: 8MCG/600MG
     Route: 065
     Dates: start: 20120719
  49. PMS-ZOPICLONE [Concomitant]
     Route: 065
     Dates: start: 20120719
  50. ASACOL [Concomitant]
     Route: 065
     Dates: start: 20120720

REACTIONS (1)
  - Pancreatitis [Recovered/Resolved]
